FAERS Safety Report 8625052-4 (Version None)
Quarter: 2012Q3

REPORT INFORMATION
  Report Type: 
  Country: None (occurrence: None)
  Receive Date: 20120827
  Receipt Date: 20120822
  Transmission Date: 20120928
  Serious: Yes (Hospitalization, Disabling, Other)
  Sender: FDA-Public Use
  Company Number: US-009507513-1205USA04997

PATIENT

DRUGS (3)
  1. FOSAMAX PLUS D [Suspect]
     Indication: OSTEOPOROSIS PROPHYLAXIS
     Dosage: UNK
     Route: 048
     Dates: start: 19990101, end: 20100101
  2. FOSAMAX [Suspect]
     Route: 048
     Dates: start: 20001031, end: 20100101
  3. FOSAMAX [Suspect]
     Indication: OSTEOPOROSIS PROPHYLAXIS
     Dosage: 10 MG DAILY
     Route: 048
     Dates: start: 19990101, end: 20100101

REACTIONS (5)
  - BLOOD CHOLESTEROL INCREASED [None]
  - HYPERTENSION [None]
  - FEMUR FRACTURE [None]
  - OSTEOPOROSIS [None]
  - INTRAMEDULLARY ROD INSERTION [None]
